FAERS Safety Report 8549470-8 (Version None)
Quarter: 2012Q3

REPORT INFORMATION
  Report Type: 
  Country: None (occurrence: None)
  Receive Date: 20120730
  Receipt Date: 20120716
  Transmission Date: 20120928
  Serious: Yes (Other)
  Sender: FDA-Public Use
  Company Number: DE-ROCHE-1089830

PATIENT

DRUGS (4)
  1. IRINOTECAN HYDROCHLORIDE [Suspect]
     Indication: COLORECTAL CANCER METASTATIC
  2. CETUXIMAB [Suspect]
     Indication: COLORECTAL CANCER METASTATIC
  3. AVASTIN [Suspect]
     Indication: COLORECTAL CANCER METASTATIC
  4. OXALIPLATIN [Suspect]
     Indication: COLORECTAL CANCER METASTATIC

REACTIONS (6)
  - SMALL INTESTINAL OBSTRUCTION [None]
  - EMBOLISM [None]
  - ABDOMINAL WALL ABSCESS [None]
  - HEPATIC FAILURE [None]
  - WOUND INFECTION [None]
  - LOCALISED INFECTION [None]
